FAERS Safety Report 7465578-2 (Version None)
Quarter: 2011Q2

REPORT INFORMATION
  Report Type: 
  Country: None (occurrence: None)
  Receive Date: 20110509
  Receipt Date: 20110506
  Transmission Date: 20111010
  Serious: Yes (Other)
  Sender: FDA-Public Use
  Company Number: RU-ROCHE-775569

PATIENT
  Age: 71 Year
  Sex: Female

DRUGS (5)
  1. NEBIVOLOL HCL [Concomitant]
  2. CALCIUM-D3 NYCOMED [Concomitant]
  3. ARIFON [Concomitant]
  4. BONIVA [Suspect]
     Indication: OSTEOPOROSIS
     Route: 048
     Dates: start: 20110304
  5. PRESTARIUM [Concomitant]

REACTIONS (2)
  - RECTAL HAEMORRHAGE [None]
  - GASTROINTESTINAL PAIN [None]
